FAERS Safety Report 9643039 (Version 1)
Quarter: 2013Q4

REPORT INFORMATION
  Report Type: Spontaneous
  Country: AU (occurrence: None)
  Receive Date: 20131022
  Receipt Date: 20131022
  Transmission Date: 20140711
  Serious: Yes (Hospitalization)
  Sender: FDA-Public Use
  Company Number: 2013P1020109

PATIENT
  Age: 32 Year
  Sex: Female

DRUGS (3)
  1. VALPROATE SODIUM [Suspect]
     Indication: CONVULSION
  2. DOXEPIN [Suspect]
     Indication: BIPOLAR DISORDER
  3. LAMOTRIGINE [Concomitant]

REACTIONS (12)
  - Fall [None]
  - Aura [None]
  - Loss of consciousness [None]
  - Tardive dyskinesia [None]
  - Myoclonus [None]
  - Lip injury [None]
  - Urinary incontinence [None]
  - Dissociation [None]
  - Feeling abnormal [None]
  - Convulsion [None]
  - Complex partial seizures [None]
  - Somnolence [None]
